FAERS Safety Report 8336500-1 (Version None)
Quarter: 2012Q2

REPORT INFORMATION
  Report Type: 
  Country: None (occurrence: None)
  Receive Date: 20120504
  Receipt Date: 20120423
  Transmission Date: 20120825
  Serious: Yes (Other)
  Sender: FDA-Public Use
  Company Number: FR-CELGENEUS-056-21880-12042569

PATIENT
  Age: 81 Year
  Sex: Male

DRUGS (3)
  1. DEXAMETHASONE [Concomitant]
     Route: 065
  2. REVLIMID [Suspect]
     Indication: MULTIPLE MYELOMA
     Dosage: 10 MILLIGRAM
     Route: 048
  3. EPO [Concomitant]
     Route: 065

REACTIONS (1)
  - ACUTE MYELOID LEUKAEMIA [None]
